FAERS Safety Report 11133003 (Version 4)
Quarter: 2016Q3

REPORT INFORMATION
  Report Type: Report from Study
  Country: DE (occurrence: DE)
  Receive Date: 20150522
  Receipt Date: 20160929
  Transmission Date: 20161109
  Serious: Yes (Other)
  Sender: FDA-Public Use
  Company Number: DE-INCYTE CORPORATION-2015IN002189

PATIENT
  Age: 77 Year
  Sex: Female
  Weight: 62 kg

DRUGS (21)
  1. INCB018424 [Suspect]
     Active Substance: RUXOLITINIB
     Dosage: 20 MG, QD (10 MG, 2 DF PER DAY)
     Route: 048
     Dates: start: 20150109
  2. ASPIRIN. [Concomitant]
     Active Substance: ASPIRIN
     Indication: PRODUCT USED FOR UNKNOWN INDICATION
     Dosage: 100 MG, QD
     Dates: start: 20121109
  3. INCB018424 [Suspect]
     Active Substance: RUXOLITINIB
     Dosage: 10 MG, QD (5 MG,2 DF PER DAY)
     Route: 048
     Dates: start: 20141204, end: 20150108
  4. FOSTER [Concomitant]
     Active Substance: BECLOMETHASONE\FORMOTEROL
  5. SPIRIVA [Concomitant]
     Active Substance: TIOTROPIUM BROMIDE MONOHYDRATE
     Route: 065
  6. NEBIVOLOL. [Concomitant]
     Active Substance: NEBIVOLOL
     Dosage: 7.5 MG, QD
     Route: 065
  7. INCB018424 [Suspect]
     Active Substance: RUXOLITINIB
     Indication: MYELOFIBROSIS
     Dosage: 30 MG, QD (15 MG, 2 DF PER DAY)
     Route: 048
     Dates: start: 20141028, end: 20141106
  8. ASPIRIN. [Concomitant]
     Active Substance: ASPIRIN
     Indication: MYELOFIBROSIS
     Route: 065
  9. ESOMEP//ESOMEPRAZOLE [Concomitant]
     Route: 065
  10. SPIRIVA [Concomitant]
     Active Substance: TIOTROPIUM BROMIDE MONOHYDRATE
     Route: 065
  11. FOSTER [Concomitant]
     Active Substance: BECLOMETHASONE\FORMOTEROL
     Indication: ASTHMA
     Dosage: 400 UG, QD
     Route: 065
  12. SPIRIVA [Concomitant]
     Active Substance: TIOTROPIUM BROMIDE MONOHYDRATE
     Indication: CHRONIC OBSTRUCTIVE PULMONARY DISEASE
     Dosage: 5 UG, QD
  13. TORASEMIDE [Concomitant]
     Active Substance: TORSEMIDE
     Indication: PRODUCT USED FOR UNKNOWN INDICATION
     Dosage: 20 MG, QD
     Route: 065
  14. CLOPIDOGREL [Suspect]
     Active Substance: CLOPIDOGREL BISULFATE
     Indication: PRODUCT USED FOR UNKNOWN INDICATION
     Dosage: 75 MG, QD
     Route: 065
     Dates: start: 20100719, end: 20150115
  15. NEBIVOLOL. [Concomitant]
     Active Substance: NEBIVOLOL
     Dosage: 7.5 MG, QD
     Route: 065
  16. TORASEMIDE [Concomitant]
     Active Substance: TORSEMIDE
     Dosage: 20 MG, QD
     Route: 065
  17. NEBIVOLOL. [Concomitant]
     Active Substance: NEBIVOLOL
     Indication: PRODUCT USED FOR UNKNOWN INDICATION
     Dosage: 7.5 MG, QD
     Route: 065
  18. ESOMEP//ESOMEPRAZOLE [Concomitant]
     Indication: PRODUCT USED FOR UNKNOWN INDICATION
     Dosage: 40 MG, QD
  19. ASPIRIN. [Concomitant]
     Active Substance: ASPIRIN
     Dosage: 100 MG, QD
     Route: 065
     Dates: start: 20121109
  20. ESOMEP//ESOMEPRAZOLE [Concomitant]
     Route: 065
  21. TORASEMIDE [Concomitant]
     Active Substance: TORSEMIDE
     Dosage: 20 MG, QD
     Route: 065

REACTIONS (5)
  - Escherichia urinary tract infection [Recovered/Resolved]
  - Thrombocytopenia [Not Recovered/Not Resolved]
  - Haemoglobin decreased [Recovered/Resolved]
  - Red blood cell count decreased [Unknown]
  - Haematoma [Not Recovered/Not Resolved]

NARRATIVE: CASE EVENT DATE: 201411
